FAERS Safety Report 8489937-4 (Version None)
Quarter: 2012Q3

REPORT INFORMATION
  Report Type: 
  Country: None (occurrence: None)
  Receive Date: 20120705
  Receipt Date: 20120702
  Transmission Date: 20120928
  Serious: Yes (Other)
  Sender: FDA-Public Use
  Company Number: US-BAYER-2012-066655

PATIENT
  Age: 88 Year
  Sex: Female
  Weight: 73 kg

DRUGS (4)
  1. METOPROLOL SUCCINATE [Concomitant]
  2. PRAVASTATIN [Concomitant]
  3. AMLODIPINE [Concomitant]
  4. ALEVE (CAPLET) [Suspect]
     Indication: ARTHRALGIA
     Dosage: 2 TAB AS NEEDED
     Route: 048
     Dates: start: 20120101, end: 20120101

REACTIONS (1)
  - DYSPNOEA [None]
